FAERS Safety Report 17638848 (Version 2)
Quarter: 2020Q3

REPORT INFORMATION
  Report Type: Spontaneous
  Country: US (occurrence: US)
  Receive Date: 20200407
  Receipt Date: 20200716
  Transmission Date: 20201102
  Serious: No
  Sender: FDA-Public Use
  Company Number: US-SA-2020SA085368

PATIENT

DRUGS (1)
  1. ADMELOG [Suspect]
     Active Substance: INSULIN LISPRO
     Dosage: 30 IU, QD
     Route: 065

REACTIONS (4)
  - Device operational issue [Unknown]
  - Product dose omission issue [Unknown]
  - Blood glucose decreased [Unknown]
  - Blood glucose increased [Unknown]
